FAERS Safety Report 20143407 (Version 2)
Quarter: 2021Q4

REPORT INFORMATION
  Report Type: Spontaneous
  Country: DE (occurrence: DE)
  Receive Date: 20211203
  Receipt Date: 20211213
  Transmission Date: 20220304
  Serious: Yes (Other)
  Sender: FDA-Public Use
  Company Number: DE-MLMSERVICE-20211013-3163262-1

PATIENT
  Age: 37 Year
  Sex: Female

DRUGS (8)
  1. OLANZAPINE [Suspect]
     Active Substance: OLANZAPINE
     Indication: Psychotic disorder
     Dosage: DEPOT MEDICATION
  2. OLANZAPINE [Suspect]
     Active Substance: OLANZAPINE
     Dates: start: 202003, end: 2020
  3. RISPERIDONE [Suspect]
     Active Substance: RISPERIDONE
     Indication: Psychotic disorder
     Dosage: DEPOT MEDICATION
  4. RISPERIDONE [Suspect]
     Active Substance: RISPERIDONE
     Dates: start: 202003, end: 2020
  5. PALIPERIDONE [Suspect]
     Active Substance: PALIPERIDONE
     Indication: Psychotic disorder
     Dosage: DEPOT MEDICATION
  6. LEVOTHYROXINE SODIUM [Concomitant]
     Active Substance: LEVOTHYROXINE SODIUM
     Indication: Autoimmune thyroiditis
  7. PREGABALIN [Concomitant]
     Active Substance: PREGABALIN
     Indication: Anxiolytic therapy
     Dosage: NIGHTLY
  8. PREGABALIN [Concomitant]
     Active Substance: PREGABALIN
     Indication: Hypnotherapy

REACTIONS (4)
  - Obesity [Recovering/Resolving]
  - Type 2 diabetes mellitus [Recovering/Resolving]
  - Weight increased [Recovering/Resolving]
  - Akathisia [Recovering/Resolving]
